FAERS Safety Report 9877609 (Version 2)
Quarter: 2014Q2

REPORT INFORMATION
  Report Type: Other
  Country: US (occurrence: US)
  Receive Date: 20140206
  Receipt Date: 20140407
  Transmission Date: 20141212
  Serious: Yes (Hospitalization, Other)
  Sender: FDA-Public Use
  Company Number: US-ACORDA-ACO_38850_2013

PATIENT
  Age: 58 Year
  Sex: Female
  Weight: 52.61 kg

DRUGS (4)
  1. AMPYRA [Suspect]
     Indication: MULTIPLE SCLEROSIS
     Dosage: 10 MG, BID
     Route: 048
     Dates: start: 20120511
  2. AMPYRA [Suspect]
     Indication: GAIT DISTURBANCE
  3. LASIX [Concomitant]
     Indication: PRODUCT USED FOR UNKNOWN INDICATION
     Dosage: UNK,UNK
     Route: 065
  4. ALL OTHER THERAPEUTIC PRODUCTS [Concomitant]
     Indication: PRODUCT USED FOR UNKNOWN INDICATION
     Dosage: UNK,UNK
     Route: 065

REACTIONS (14)
  - Myocardial infarction [Unknown]
  - Myocardial infarction [Unknown]
  - Fibromyalgia [Unknown]
  - Multiple sclerosis relapse [Unknown]
  - Fall [Recovering/Resolving]
  - Upper limb fracture [Recovering/Resolving]
  - Limb injury [Recovering/Resolving]
  - Dysgraphia [Recovering/Resolving]
  - Weight decreased [Recovering/Resolving]
  - Therapeutic response changed [Unknown]
  - Burning sensation [Recovering/Resolving]
  - Confusional state [Recovering/Resolving]
  - Asthenia [Unknown]
  - Drug ineffective [Unknown]
